FAERS Safety Report 10770829 (Version 1)
Quarter: 2015Q1

REPORT INFORMATION
  Report Type: Spontaneous
  Country: US (occurrence: None)
  Receive Date: 20150206
  Receipt Date: 20150206
  Transmission Date: 20150721
  Serious: No
  Sender: FDA-Public Use
  Company Number: HYP201305-000020

PATIENT
  Age: 36 Year
  Sex: Female
  Weight: 67.58 kg

DRUGS (1)
  1. RAVICTI [Suspect]
     Active Substance: GLYCEROL PHENYLBUTYRATE
     Indication: HYPERAMMONAEMIA
     Route: 048
     Dates: start: 201304, end: 201304

REACTIONS (10)
  - Hypokinesia [None]
  - Vertigo [None]
  - Disorientation [None]
  - Gait disturbance [None]
  - Amnesia [None]
  - Feeling abnormal [None]
  - Pain [None]
  - Dizziness [None]
  - Crying [None]
  - Illusion [None]

NARRATIVE: CASE EVENT DATE: 2013
